FAERS Safety Report 7242158-5 (Version None)
Quarter: 2011Q1

REPORT INFORMATION
  Report Type: 
  Country: None (occurrence: None)
  Receive Date: 20110124
  Receipt Date: 20110117
  Transmission Date: 20110831
  Serious: Yes (Disabling)
  Sender: FDA-Public Use
  Company Number: US-US-EMD SERONO, INC.-7026259

PATIENT
  Sex: Female

DRUGS (2)
  1. REBIF [Suspect]
     Indication: PRODUCT USED FOR UNKNOWN INDICATION
     Route: 058
     Dates: start: 20070423
  2. REBIF [Suspect]
     Route: 058
     Dates: start: 20101105

REACTIONS (9)
  - HYPOAESTHESIA [None]
  - MONOPLEGIA [None]
  - BALANCE DISORDER [None]
  - PARAESTHESIA [None]
  - INJECTION SITE PAIN [None]
  - INFLUENZA LIKE ILLNESS [None]
  - LETHARGY [None]
  - SENSATION OF HEAVINESS [None]
  - CONTUSION [None]
